FAERS Safety Report 5490891-8 (Version None)
Quarter: 2007Q4

REPORT INFORMATION
  Report Type: 
  Country: None (occurrence: None)
  Receive Date: 20071019
  Receipt Date: 20071015
  Transmission Date: 20080405
  Serious: Yes (Hospitalization)
  Sender: FDA-Public Use
  Company Number: JP-BRISTOL-MYERS SQUIBB COMPANY-13939632

PATIENT
  Age: 52 Year
  Sex: Female

DRUGS (5)
  1. TAXOL [Suspect]
     Indication: GASTRIC CANCER
     Route: 041
     Dates: end: 20070928
  2. DECADRON [Concomitant]
     Route: 042
  3. ZANTAC [Concomitant]
     Route: 042
  4. DIPHENHYDRAMINE HCL [Concomitant]
     Route: 048
  5. OXYCONTIN [Concomitant]
     Route: 048

REACTIONS (4)
  - BLOOD PRESSURE INCREASED [None]
  - DELIRIUM [None]
  - FLUSHING [None]
  - HYPERHIDROSIS [None]
